FAERS Safety Report 20559886 (Version 1)
Quarter: 2022Q1

REPORT INFORMATION
  Report Type: Spontaneous
  Country: US (occurrence: None)
  Receive Date: 20220305
  Receipt Date: 20220305
  Transmission Date: 20220423
  Serious: Yes (Hospitalization)
  Sender: FDA-Public Use
  Company Number: None

PATIENT
  Age: 42 Year
  Sex: Female
  Weight: 89 kg

DRUGS (2)
  1. PERTUZUMAB [Suspect]
     Active Substance: PERTUZUMAB
     Dates: end: 20220214
  2. TRASTUZUMAB [Suspect]
     Active Substance: TRASTUZUMAB
     Dates: end: 20220214

REACTIONS (1)
  - Breast cellulitis [None]

NARRATIVE: CASE EVENT DATE: 20220302
